FAERS Safety Report 7050257-6 (Version None)
Quarter: 2010Q4

REPORT INFORMATION
  Report Type: 
  Country: None (occurrence: None)
  Receive Date: 20101018
  Receipt Date: 20101006
  Transmission Date: 20110411
  Serious: Yes (Hospitalization)
  Sender: FDA-Public Use
  Company Number: US-MYLANLABS-2010S1018497

PATIENT
  Age: 30 Year
  Sex: Female
  Weight: 62.6 kg

DRUGS (5)
  1. METOPROLOL TARTRATE [Suspect]
     Indication: MIGRAINE
     Route: 048
     Dates: start: 20100301
  2. AMITRIPTYLINE [Concomitant]
     Indication: MIGRAINE
     Route: 048
  3. PROTONIX [Concomitant]
     Indication: ULCER
     Route: 048
  4. PLAVIX [Concomitant]
     Indication: BLOOD CHOLESTEROL
     Route: 048
  5. PRAVASTATIN [Concomitant]
     Indication: BLOOD CHOLESTEROL
     Route: 048

REACTIONS (1)
  - LOSS OF CONSCIOUSNESS [None]
